FAERS Safety Report 16280831 (Version 1)
Quarter: 2019Q2

REPORT INFORMATION
  Report Type: Report from Study
  Country: ES (occurrence: ES)
  Receive Date: 20190507
  Receipt Date: 20190507
  Transmission Date: 20190711
  Serious: Yes (Hospitalization)
  Sender: FDA-Public Use
  Company Number: ES-ROCHE-2310708

PATIENT
  Age: 85 Year
  Sex: Male

DRUGS (48)
  1. MYCOPHENOLATE MOFETIL. [Suspect]
     Active Substance: MYCOPHENOLATE MOFETIL
     Indication: RENAL TRANSPLANT
     Route: 065
  2. NIFEDIPINE. [Concomitant]
     Active Substance: NIFEDIPINE
  3. CEFTAZIDIME. [Concomitant]
     Active Substance: CEFTAZIDIME
  4. RISPERIDONE. [Concomitant]
     Active Substance: RISPERIDONE
  5. HALOPERIDOL. [Concomitant]
     Active Substance: HALOPERIDOL
  6. DARBEPOETIN ALFA [Concomitant]
     Active Substance: DARBEPOETIN ALFA
  7. METHYLPREDNISOLONE. [Concomitant]
     Active Substance: METHYLPREDNISOLONE
  8. CIPROFLOXACIN. [Concomitant]
     Active Substance: CIPROFLOXACIN
  9. HYDROCORTISONE. [Concomitant]
     Active Substance: HYDROCORTISONE
  10. PREDNISONE. [Concomitant]
     Active Substance: PREDNISONE
  11. BIMATOPROST. [Concomitant]
     Active Substance: BIMATOPROST
  12. MEGESTROL [Concomitant]
     Active Substance: MEGESTROL
  13. LACTULOSE. [Concomitant]
     Active Substance: LACTULOSE
  14. COTRIMOXAZOLE [Concomitant]
     Active Substance: SULFAMETHOXAZOLE\TRIMETHOPRIM
  15. CEFAZOLINE [CEFAZOLIN] [Concomitant]
     Active Substance: CEFAZOLIN
  16. ACETYLSALICYLIC ACID [Concomitant]
     Active Substance: ASPIRIN
  17. SODIUM BICARBONATE. [Concomitant]
     Active Substance: SODIUM BICARBONATE
  18. ADIRO [Concomitant]
     Active Substance: ASPIRIN
  19. LEVOTHYROXINE. [Concomitant]
     Active Substance: LEVOTHYROXINE
  20. SIMVASTATINE [Concomitant]
     Active Substance: SIMVASTATIN
  21. METAMIZOLE [Concomitant]
     Active Substance: METAMIZOLE
  22. CALCITRIOL. [Concomitant]
     Active Substance: CALCITRIOL
  23. CALCIUM CARBONATE. [Concomitant]
     Active Substance: CALCIUM CARBONATE
  24. FUROSEMIDE. [Concomitant]
     Active Substance: FUROSEMIDE
  25. GABAPENTINE [Concomitant]
     Active Substance: GABAPENTIN
  26. BASILIXIMAB [Concomitant]
     Active Substance: BASILIXIMAB
  27. PARACETAMOL [Concomitant]
     Active Substance: ACETAMINOPHEN
  28. TAMSULOSIN [Concomitant]
     Active Substance: TAMSULOSIN
  29. LACTOBACILLUS [Concomitant]
     Active Substance: LACTOBACILLUS ACIDOPHILUS
  30. SALBUTAMOL [Concomitant]
     Active Substance: ALBUTEROL
  31. IPRATROPIUM BROMIDE. [Concomitant]
     Active Substance: IPRATROPIUM BROMIDE
  32. ENOXAPARIN [Concomitant]
     Active Substance: ENOXAPARIN
  33. METOCLOPRAMIDE. [Concomitant]
     Active Substance: METOCLOPRAMIDE
  34. ERTAPENEM. [Concomitant]
     Active Substance: ERTAPENEM SODIUM
  35. FOLIC ACID. [Concomitant]
     Active Substance: FOLIC ACID
  36. SIMVASTATIN. [Concomitant]
     Active Substance: SIMVASTATIN
  37. QUETIAPINE. [Concomitant]
     Active Substance: QUETIAPINE
  38. CITALOPRAM [Concomitant]
     Active Substance: CITALOPRAM HYDROBROMIDE
  39. TRAMADOL. [Concomitant]
     Active Substance: TRAMADOL
  40. EBASTINE [Concomitant]
     Active Substance: EBASTINE
  41. TACROLIMUS. [Concomitant]
     Active Substance: TACROLIMUS
  42. PANTOPRAZOLE [Concomitant]
     Active Substance: PANTOPRAZOLE
  43. ALLOPURINOL. [Concomitant]
     Active Substance: ALLOPURINOL
  44. VALGANCICLOVIR. [Concomitant]
     Active Substance: VALGANCICLOVIR
  45. OMEPRAZOL [OMEPRAZOLE] [Concomitant]
  46. LOPERAMIDE [Concomitant]
     Active Substance: LOPERAMIDE
  47. ONDANSETRON [Concomitant]
     Active Substance: ONDANSETRON
  48. OMEPRAZOLE. [Concomitant]
     Active Substance: OMEPRAZOLE

REACTIONS (1)
  - Delayed graft function [Recovered/Resolved]

NARRATIVE: CASE EVENT DATE: 20161014
